FAERS Safety Report 16902307 (Version 1)
Quarter: 2019Q4

REPORT INFORMATION
  Report Type: Spontaneous
  Country: US (occurrence: US)
  Receive Date: 20191010
  Receipt Date: 20191010
  Transmission Date: 20200122
  Serious: Yes (Other)
  Sender: FDA-Public Use
  Company Number: US-AUROBINDO-AUR-APL-2019-064521

PATIENT
  Age: 69 Year
  Sex: Male

DRUGS (10)
  1. AMOXICILLIN SODIUM;CLAVULANIC ACID [Concomitant]
     Indication: APPENDICEAL ABSCESS
     Dosage: UNK
     Route: 048
  2. CIPROFLOXACIN. [Concomitant]
     Active Substance: CIPROFLOXACIN
     Indication: LUNG ABSCESS
     Dosage: UNK
     Route: 048
  3. METRONIDAZOLE. [Suspect]
     Active Substance: METRONIDAZOLE
     Indication: APPENDICEAL ABSCESS
  4. CIPROFLOXACIN. [Concomitant]
     Active Substance: CIPROFLOXACIN
     Indication: APPENDICEAL ABSCESS
  5. METRONIDAZOLE. [Suspect]
     Active Substance: METRONIDAZOLE
     Indication: LUNG ABSCESS
     Dosage: UNK
     Route: 065
  6. CEFTRIAXONE. [Concomitant]
     Active Substance: CEFTRIAXONE
     Indication: APPENDICEAL ABSCESS
     Dosage: UNK
     Route: 065
  7. MOXIFLOXACIN. [Concomitant]
     Active Substance: MOXIFLOXACIN
     Indication: APPENDICEAL ABSCESS
     Dosage: UNK
     Route: 065
  8. CEFTRIAXONE. [Concomitant]
     Active Substance: CEFTRIAXONE
     Indication: LUNG ABSCESS
  9. AMOXICILLIN SODIUM;CLAVULANIC ACID [Concomitant]
     Indication: LUNG ABSCESS
  10. MOXIFLOXACIN. [Concomitant]
     Active Substance: MOXIFLOXACIN
     Indication: LUNG ABSCESS

REACTIONS (3)
  - Toxic encephalopathy [Recovering/Resolving]
  - Neuropathy peripheral [Not Recovered/Not Resolved]
  - Toxicity to various agents [Recovering/Resolving]
